FAERS Safety Report 7374892-0 (Version None)
Quarter: 2011Q1

REPORT INFORMATION
  Report Type: 
  Country: None (occurrence: None)
  Receive Date: 20110325
  Receipt Date: 20110228
  Transmission Date: 20110831
  Serious: No
  Sender: FDA-Public Use
  Company Number: US-B.I. PHARMACEUTICALS,INC./RIDGEFIELD-2011-BP-05681BP

PATIENT
  Sex: Female

DRUGS (10)
  1. DIVIGEL [Concomitant]
     Indication: HYSTERECTOMY
  2. METOPROLOL [Concomitant]
     Indication: ATRIAL FIBRILLATION
  3. FLECAINIDE ACETATE [Concomitant]
     Indication: ATRIAL FIBRILLATION
  4. CALCIUM [Concomitant]
     Indication: PROPHYLAXIS
  5. NAPROXEN [Concomitant]
     Indication: ARTHRITIS
  6. MULTIVITAMIN [Concomitant]
     Indication: PROPHYLAXIS
  7. ASPIRIN [Concomitant]
     Indication: PROPHYLAXIS
  8. PRADAXA [Suspect]
     Indication: ATRIAL FIBRILLATION
     Dosage: 300 MG
     Route: 048
     Dates: start: 20110101
  9. FISH OIL [Concomitant]
     Indication: PROPHYLAXIS
  10. STOOL SOFTENER [Concomitant]
     Indication: CONSTIPATION

REACTIONS (2)
  - CONTUSION [None]
  - COLD SWEAT [None]
